FAERS Safety Report 7810137-2 (Version None)
Quarter: 2011Q4

REPORT INFORMATION
  Report Type: 
  Country: None (occurrence: None)
  Receive Date: 20111012
  Receipt Date: 20111006
  Transmission Date: 20120403
  Serious: Yes (Other)
  Sender: FDA-Public Use
  Company Number: US-PFIZER INC-2011239249

PATIENT
  Sex: Female
  Weight: 71.202 kg

DRUGS (3)
  1. LISINOPRIL [Concomitant]
     Indication: HYPERTENSION
     Dosage: UNK
  2. AMLODIPINE [Concomitant]
     Indication: HYPERTENSION
     Dosage: UNK
  3. LIPITOR [Suspect]
     Indication: BLOOD CHOLESTEROL INCREASED
     Dosage: 20 MG, 1X/DAY
     Route: 048
     Dates: start: 20110924, end: 20111004

REACTIONS (5)
  - CHEST PAIN [None]
  - PAIN [None]
  - PAIN IN EXTREMITY [None]
  - BACK PAIN [None]
  - MYALGIA [None]
